FAERS Safety Report 5003199-1 (Version None)
Quarter: 2006Q2

REPORT INFORMATION
  Report Type: 
  Country: None (occurrence: None)
  Receive Date: 20060510
  Receipt Date: 20060428
  Transmission Date: 20061013
  Serious: Yes (Hospitalization, Disabling, Other)
  Sender: FDA-Public Use
  Company Number: 200611815BCC

PATIENT
  Age: 38 Year
  Sex: Male
  Weight: 138.3471 kg

DRUGS (8)
  1. ALEVE [Suspect]
     Dosage: 440/220 MG, PRN, ORAL; SEE IMAGE
     Route: 048
     Dates: start: 20010101
  2. ALEVE [Suspect]
     Dosage: 440/220 MG, PRN, ORAL; SEE IMAGE
     Route: 048
     Dates: start: 20060424
  3. ASPIRIN [Suspect]
     Indication: CEREBROVASCULAR ACCIDENT PROPHYLAXIS
     Dosage: ORAL
     Route: 048
     Dates: start: 20010101
  4. ASPIRIN [Suspect]
     Indication: ISCHAEMIC HEART DISEASE PROPHYLAXIS
     Dosage: ORAL
     Route: 048
     Dates: start: 20010101
  5. GLUCOPHAGE [Concomitant]
  6. ZOCOR [Concomitant]
  7. PERCOCET [Concomitant]
  8. HEART MEDICATION [Concomitant]

REACTIONS (5)
  - ANEURYSM [None]
  - BLOOD URINE PRESENT [None]
  - CEREBROVASCULAR ACCIDENT [None]
  - HAEMATOCHEZIA [None]
  - MYOCARDIAL INFARCTION [None]
